FAERS Safety Report 14068482 (Version 1)
Quarter: 2017Q4

REPORT INFORMATION
  Report Type: Spontaneous
  Country: US (occurrence: US)
  Receive Date: 20171010
  Receipt Date: 20171010
  Transmission Date: 20180321
  Serious: No
  Sender: FDA-Public Use
  Company Number: None

PATIENT
  Age: 50 Year
  Sex: Female
  Weight: 99 kg

DRUGS (19)
  1. VENLAFAXINE HCL [Suspect]
     Active Substance: VENLAFAXINE HYDROCHLORIDE
     Indication: PAIN
     Dosage: ?          QUANTITY:1 TABLET(S);?
     Route: 048
  2. FLEXERIL [Concomitant]
     Active Substance: CYCLOBENZAPRINE HYDROCHLORIDE
  3. NORVASC [Concomitant]
     Active Substance: AMLODIPINE BESYLATE
  4. VENLAFAXINE [Concomitant]
     Active Substance: VENLAFAXINE HYDROCHLORIDE
  5. HYDROMORPHONE [Concomitant]
     Active Substance: HYDROMORPHONE
  6. LEVEMIR [Concomitant]
     Active Substance: INSULIN DETEMIR
  7. PLAVIX [Concomitant]
     Active Substance: CLOPIDOGREL BISULFATE
  8. QUINAPRIL. [Concomitant]
     Active Substance: QUINAPRIL
  9. MIRALAX [Concomitant]
     Active Substance: POLYETHYLENE GLYCOL 3350
  10. ASPIRIN. [Concomitant]
     Active Substance: ASPIRIN
  11. PROMETHAZINE [Concomitant]
     Active Substance: PROMETHAZINE\PROMETHAZINE HYDROCHLORIDE
  12. VENLAFAXINE HCL [Suspect]
     Active Substance: VENLAFAXINE HYDROCHLORIDE
     Indication: DEPRESSION
     Dosage: ?          QUANTITY:1 TABLET(S);?
     Route: 048
  13. NOVOLOG [Concomitant]
     Active Substance: INSULIN ASPART
  14. CATAPRES [Concomitant]
     Active Substance: CLONIDINE HYDROCHLORIDE
  15. REGLAN [Concomitant]
     Active Substance: METOCLOPRAMIDE HYDROCHLORIDE
  16. MAGNESIUM VITAMIN [Concomitant]
  17. VENLAFAXINE HCL [Suspect]
     Active Substance: VENLAFAXINE HYDROCHLORIDE
     Indication: ANXIETY
     Dosage: ?          QUANTITY:1 TABLET(S);?
     Route: 048
  18. ALPRAZOLAM. [Suspect]
     Active Substance: ALPRAZOLAM
     Indication: ANXIETY
     Dosage: ?          QUANTITY:1 TABLET(S);?
     Route: 048
     Dates: start: 20170916, end: 20170922
  19. XANAX [Concomitant]
     Active Substance: ALPRAZOLAM

REACTIONS (4)
  - Fluid retention [None]
  - Product substitution issue [None]
  - Blood pressure increased [None]
  - Depression [None]

NARRATIVE: CASE EVENT DATE: 20171005
